FAERS Safety Report 22628183 (Version 1)
Quarter: 2023Q2

REPORT INFORMATION
  Report Type: Spontaneous
  Country: US (occurrence: US)
  Receive Date: 20230622
  Receipt Date: 20230622
  Transmission Date: 20230722
  Serious: Yes (Death, Life-Threatening, Hospitalization, Other)
  Sender: FDA-Public Use
  Company Number: US-MACLEODS PHARMACEUTICALS US LTD-MAC2023041972

PATIENT

DRUGS (4)
  1. AMLODIPINE [Suspect]
     Active Substance: AMLODIPINE BESYLATE
     Indication: Product used for unknown indication
     Dosage: 900 MILLIGRAM, SINGLE (INGESTION)
     Route: 048
  2. ATENOLOL [Suspect]
     Active Substance: ATENOLOL
     Indication: Product used for unknown indication
     Dosage: 2250 MILLIGRAM, SINGLE (INGESTION)
     Route: 048
  3. HYDROCHLOROTHIAZIDE [Suspect]
     Active Substance: HYDROCHLOROTHIAZIDE
     Indication: Product used for unknown indication
     Dosage: 1025 MILLIGRAM, SINGLE (INGESTION)
     Route: 048
  4. SIMVASTATIN [Suspect]
     Active Substance: SIMVASTATIN
     Indication: Product used for unknown indication
     Dosage: 1600 MILLIGRAM, SINGLE (INGESTION)
     Route: 048

REACTIONS (6)
  - Aortic thrombosis [Fatal]
  - Suicide attempt [Unknown]
  - Respiratory failure [Unknown]
  - Bradycardia [Unknown]
  - Hypotension [Unknown]
  - Intentional overdose [Unknown]
